FAERS Safety Report 21731730 (Version 5)
Quarter: 2024Q1

REPORT INFORMATION
  Report Type: Report from Study
  Country: CA (occurrence: CA)
  Receive Date: 20221215
  Receipt Date: 20240116
  Transmission Date: 20240410
  Serious: Yes (Disabling, Other)
  Sender: FDA-Public Use
  Company Number: CA-CHIESI-2022CHF03180

PATIENT
  Age: 58 Year
  Sex: Female
  Weight: 46 kg

DRUGS (12)
  1. DEFERIPRONE [Suspect]
     Active Substance: DEFERIPRONE
     Indication: Thalassaemia
     Dosage: 1000 MILLIGRAM, TID
     Route: 048
     Dates: start: 20220418
  2. DEFERIPRONE [Suspect]
     Active Substance: DEFERIPRONE
     Dosage: 4000 MILLIGRAM, QD
     Route: 048
  3. DEFERIPRONE [Suspect]
     Active Substance: DEFERIPRONE
     Dosage: 5000 MILLIGRAM, QD
     Route: 048
  4. DEFERIPRONE [Suspect]
     Active Substance: DEFERIPRONE
     Dosage: 1000 MILLIGRAM, TID
     Route: 048
  5. DEFERIPRONE [Suspect]
     Active Substance: DEFERIPRONE
     Dosage: 4000 MILLIGRAM, QD
     Route: 048
     Dates: start: 20220726
  6. DEFERIPRONE [Suspect]
     Active Substance: DEFERIPRONE
     Dosage: 5000 MILLIGRAM, QD
     Route: 048
  7. DEFERIPRONE [Suspect]
     Active Substance: DEFERIPRONE
     Dosage: 2000 MILLIGRAM, QD
     Route: 048
  8. DEFERIPRONE [Suspect]
     Active Substance: DEFERIPRONE
     Dosage: 1000 MILLIGRAM, BID
     Route: 048
     Dates: start: 20231122
  9. DEFERIPRONE [Suspect]
     Active Substance: DEFERIPRONE
     Dosage: 1000 MILLIGRAM, BID
     Route: 048
     Dates: start: 20231124
  10. PROLIA [Concomitant]
     Active Substance: DENOSUMAB
     Indication: Product used for unknown indication
     Dosage: UNK
  11. VITAMIN D NOS [Concomitant]
     Active Substance: VITAMIN D NOS
     Indication: Product used for unknown indication
     Dosage: UNK
  12. MITAPIVAT [Concomitant]
     Active Substance: MITAPIVAT
     Indication: Product used for unknown indication
     Dosage: UNK
     Dates: start: 20230110

REACTIONS (17)
  - Neuropathy peripheral [Unknown]
  - Prescribed overdose [Recovered/Resolved]
  - Abdominal pain upper [Recovered/Resolved]
  - Gait inability [Not Recovered/Not Resolved]
  - Adverse event [Unknown]
  - Constipation [Not Recovered/Not Resolved]
  - Blood uric acid increased [Unknown]
  - Pain in extremity [Not Recovered/Not Resolved]
  - Cardiac disorder [Unknown]
  - Haemoglobin decreased [Unknown]
  - Swelling [Unknown]
  - Condition aggravated [Not Recovered/Not Resolved]
  - Condition aggravated [Unknown]
  - Condition aggravated [Unknown]
  - Off label use [Not Recovered/Not Resolved]
  - Off label use [Not Recovered/Not Resolved]
  - Off label use [Not Recovered/Not Resolved]

NARRATIVE: CASE EVENT DATE: 20230701
